FAERS Safety Report 9019138 (Version 3)
Quarter: 2013Q2

REPORT INFORMATION
  Report Type: Spontaneous
  Country: JP (occurrence: JP)
  Receive Date: 20130118
  Receipt Date: 20130611
  Transmission Date: 20140414
  Serious: Yes (Hospitalization, Other)
  Sender: FDA-Public Use
  Company Number: JP-GILEAD-2012-0065407

PATIENT
  Sex: Male

DRUGS (5)
  1. HEPSERA [Suspect]
     Indication: CHRONIC HEPATITIS B
     Dosage: 10MG PER DAY
     Route: 048
     Dates: start: 20040105, end: 20120411
  2. HEPSERA [Suspect]
     Dosage: 10MG ALTERNATE DAYS
     Route: 048
     Dates: start: 20120412
  3. ZEFIX [Concomitant]
     Indication: CHRONIC HEPATITIS B
     Dosage: 1IUAX PER DAY
     Route: 048
     Dates: start: 20010717
  4. JANUVIA [Concomitant]
     Indication: TYPE 2 DIABETES MELLITUS
     Dosage: 1 DF, QD
     Route: 048
  5. GASPORT [Concomitant]
     Dosage: 1 DF, QD
     Route: 048

REACTIONS (16)
  - Renal disorder [Unknown]
  - Fanconi syndrome acquired [Recovered/Resolved]
  - Osteomalacia [Recovered/Resolved]
  - Foot fracture [Recovering/Resolving]
  - Pain in extremity [Unknown]
  - Arthralgia [Unknown]
  - Gait disturbance [Unknown]
  - Blood creatinine increased [Recovered/Resolved]
  - Blood alkaline phosphatase increased [Unknown]
  - Blood uric acid decreased [Unknown]
  - Blood phosphorus decreased [Recovered/Resolved]
  - Urine phosphorus increased [Unknown]
  - Urine uric acid increased [Unknown]
  - Renal glycosuria [Unknown]
  - Hypouricaemia [Recovered/Resolved]
  - Aminoaciduria [Unknown]
